FAERS Safety Report 6156712-5 (Version None)
Quarter: 2009Q2

REPORT INFORMATION
  Report Type: 
  Country: None (occurrence: None)
  Receive Date: 20090413
  Receipt Date: 20090413
  Transmission Date: 20091009
  Serious: Yes (Hospitalization)
  Sender: FDA-Public Use
  Company Number: None

PATIENT
  Sex: Female
  Weight: 97.9 kg

DRUGS (1)
  1. TEMOZOLOMIDE [Suspect]
     Dosage: 205 MG

REACTIONS (2)
  - INFECTION [None]
  - PERIPHERAL MOTOR NEUROPATHY [None]
